FAERS Safety Report 19201853 (Version 1)
Quarter: 2021Q2

REPORT INFORMATION
  Report Type: Spontaneous
  Country: LT (occurrence: LT)
  Receive Date: 20210430
  Receipt Date: 20210430
  Transmission Date: 20210717
  Serious: Yes (Hospitalization, Other)
  Sender: FDA-Public Use
  Company Number: LT-JNJFOC-20210445185

PATIENT
  Age: 43 Year
  Sex: Female

DRUGS (23)
  1. RISPERIDONE. [Suspect]
     Active Substance: RISPERIDONE
     Indication: SCHIZOPHRENIA
     Dosage: 4?6 MG DAILY
     Route: 065
  2. RISPERDAL CONSTA [Suspect]
     Active Substance: RISPERIDONE
     Indication: PRODUCT USED FOR UNKNOWN INDICATION
     Dosage: 25?37.5 MG
     Route: 065
  3. OLANZAPINE. [Suspect]
     Active Substance: OLANZAPINE
     Indication: SCHIZOPHRENIA
     Dosage: 20 MILLIGRAM DAILY;
     Route: 065
     Dates: start: 2015
  4. CHLORPROMAZINE. [Suspect]
     Active Substance: CHLORPROMAZINE
     Indication: SCHIZOPHRENIA
     Route: 065
  5. TRIHEXYPHENIDYL [Suspect]
     Active Substance: TRIHEXYPHENIDYL
     Indication: SCHIZOPHRENIA
     Route: 065
  6. PALIPERIDONE PALMITATE [Suspect]
     Active Substance: PALIPERIDONE PALMITATE
  7. LORAZEPAM. [Suspect]
     Active Substance: LORAZEPAM
     Indication: SCHIZOAFFECTIVE DISORDER
     Route: 065
  8. OLANZAPINE. [Suspect]
     Active Substance: OLANZAPINE
     Dosage: DOSE DECREASED
     Route: 065
  9. RISPERDAL CONSTA [Suspect]
     Active Substance: RISPERIDONE
  10. TRIFLUOPERAZINE [Suspect]
     Active Substance: TRIFLUOPERAZINE HYDROCHLORIDE
     Indication: SCHIZOAFFECTIVE DISORDER
     Route: 065
     Dates: start: 2014
  11. OLANZAPINE. [Suspect]
     Active Substance: OLANZAPINE
     Route: 065
     Dates: start: 2018
  12. PALIPERIDONE PALMITATE [Suspect]
     Active Substance: PALIPERIDONE PALMITATE
     Indication: SCHIZOPHRENIA
     Dosage: WAS ADMINISTERED EVERY 4 WEEKS.
     Route: 030
  13. PALIPERIDONE PALMITATE [Suspect]
     Active Substance: PALIPERIDONE PALMITATE
  14. RISPERIDONE. [Suspect]
     Active Substance: RISPERIDONE
     Indication: SCHIZOAFFECTIVE DISORDER
     Route: 065
  15. MEDAZEPAM [Suspect]
     Active Substance: MEDAZEPAM
     Indication: SCHIZOAFFECTIVE DISORDER
     Route: 065
     Dates: start: 2014
  16. CLONAZEPAM. [Suspect]
     Active Substance: CLONAZEPAM
     Route: 065
  17. RISPERDAL CONSTA [Suspect]
     Active Substance: RISPERIDONE
  18. RISPERDAL CONSTA [Suspect]
     Active Substance: RISPERIDONE
  19. PERPHENAZIN [Suspect]
     Active Substance: PERPHENAZINE
     Indication: SCHIZOAFFECTIVE DISORDER
     Route: 065
     Dates: start: 2014
  20. CLONAZEPAM. [Suspect]
     Active Substance: CLONAZEPAM
     Indication: SCHIZOPHRENIA
     Route: 065
  21. AMITRIPTYLINE [Suspect]
     Active Substance: AMITRIPTYLINE
     Indication: SCHIZOAFFECTIVE DISORDER
     Route: 065
     Dates: start: 2014
  22. CLOMIPRAMINE [Suspect]
     Active Substance: CLOMIPRAMINE
     Indication: SCHIZOAFFECTIVE DISORDER
     Route: 065
  23. CLONAZEPAM. [Suspect]
     Active Substance: CLONAZEPAM
     Route: 065

REACTIONS (2)
  - Intentional product misuse [Unknown]
  - Tardive dyskinesia [Recovering/Resolving]
